FAERS Safety Report 18052376 (Version 2)
Quarter: 2020Q3

REPORT INFORMATION
  Report Type: Report from Study
  Country: GB (occurrence: GB)
  Receive Date: 20200721
  Receipt Date: 20200901
  Transmission Date: 20201103
  Serious: Yes (Hospitalization)
  Sender: FDA-Public Use
  Company Number: PHHY2019GB053274

PATIENT
  Sex: Female

DRUGS (1)
  1. COSENTYX [Suspect]
     Active Substance: SECUKINUMAB
     Indication: PSORIASIS
     Dosage: 300 MG, QMO
     Route: 058
     Dates: start: 20170725

REACTIONS (8)
  - Pain [Unknown]
  - Pruritus [Unknown]
  - Hypokinesia [Unknown]
  - Psoriasis [Unknown]
  - Skin haemorrhage [Unknown]
  - Scratch [Unknown]
  - Arthropathy [Unknown]
  - Skin disorder [Unknown]
